FAERS Safety Report 4876918-2 (Version None)
Quarter: 2006Q1

REPORT INFORMATION
  Report Type: 
  Country: None (occurrence: None)
  Receive Date: 20060110
  Receipt Date: 20051209
  Transmission Date: 20060701
  Serious: Yes (Hospitalization)
  Sender: FDA-Public Use
  Company Number: FR-ROCHE-428279

PATIENT
  Age: 42 Year
  Sex: Female
  Weight: 60 kg

DRUGS (8)
  1. DACLIZUMAB [Suspect]
     Route: 042
     Dates: start: 20050530, end: 20050530
  2. DACLIZUMAB [Suspect]
     Route: 042
     Dates: start: 20050613, end: 20050613
  3. MYCOPHENOLATE MOFETIL [Suspect]
     Route: 048
     Dates: start: 20050530
  4. SIROLIMUS [Suspect]
     Route: 048
     Dates: start: 20050823, end: 20051005
  5. SIROLIMUS [Suspect]
     Route: 048
     Dates: start: 20051006
  6. PREDNISOLONE [Suspect]
     Route: 048
     Dates: start: 20050604
  7. BACTRIM [Concomitant]
     Dates: start: 20050606
  8. LASILIX [Concomitant]
     Dates: start: 20050726

REACTIONS (8)
  - EAR INFECTION [None]
  - EAR PAIN [None]
  - FUNGAL INFECTION [None]
  - HYPERTENSION [None]
  - LYMPHADENOPATHY [None]
  - ODYNOPHAGIA [None]
  - PYREXIA [None]
  - SUPERINFECTION [None]
